FAERS Safety Report 9510525 (Version 2)
Quarter: 2013Q4

REPORT INFORMATION
  Report Type: Spontaneous
  Country: US (occurrence: US)
  Receive Date: 20130909
  Receipt Date: 20131011
  Transmission Date: 20140711
  Serious: Yes (Other)
  Sender: FDA-Public Use
  Company Number: US-FRI-1000048447

PATIENT
  Age: 74 Year
  Sex: Female

DRUGS (3)
  1. LINZESS [Suspect]
     Indication: IRRITABLE BOWEL SYNDROME
     Dosage: 290 MCG
     Route: 048
     Dates: start: 20130830, end: 201309
  2. EVISTA [Concomitant]
     Indication: PROPHYLAXIS
  3. MVI [Concomitant]

REACTIONS (4)
  - Haematochezia [Recovered/Resolved]
  - Faeces hard [Recovered/Resolved]
  - Constipation [Recovered/Resolved]
  - Drug ineffective [Recovered/Resolved]
